FAERS Safety Report 10598586 (Version 1)
Quarter: 2014Q4

REPORT INFORMATION
  Report Type: Report from Study
  Country: CA (occurrence: CA)
  Receive Date: 20141121
  Receipt Date: 20141121
  Transmission Date: 20150529
  Serious: Yes (Other)
  Sender: FDA-Public Use
  Company Number: CA-JNJFOC-20141110565

PATIENT
  Age: 24 Year
  Sex: Male
  Weight: 68.04 kg

DRUGS (1)
  1. REMICADE [Suspect]
     Active Substance: INFLIXIMAB
     Indication: COLITIS ULCERATIVE
     Route: 042
     Dates: start: 201311, end: 201312

REACTIONS (2)
  - Drug ineffective [Unknown]
  - Colectomy [Unknown]

NARRATIVE: CASE EVENT DATE: 201312
